FAERS Safety Report 4473633-4 (Version None)
Quarter: 2004Q4

REPORT INFORMATION
  Report Type: 
  Country: None (occurrence: None)
  Receive Date: 20040909
  Receipt Date: 20040608
  Transmission Date: 20050328
  Serious: Yes (Other)
  Sender: FDA-Public Use
  Company Number: A03200401829

PATIENT
  Age: 56 Year
  Sex: Female
  Weight: 72.5755 kg

DRUGS (1)
  1. ELOXATIN [Suspect]
     Dosage: 174 Q3W - INTRAVENOUS NOS
     Route: 042
     Dates: start: 20040331, end: 20040331

REACTIONS (6)
  - BLOOD PRESSURE INCREASED [None]
  - CHEST PAIN [None]
  - DIZZINESS [None]
  - EYE SWELLING [None]
  - TREMOR [None]
  - VOMITING [None]
